FAERS Safety Report 12458579 (Version 1)
Quarter: 2016Q2

REPORT INFORMATION
  Report Type: Spontaneous
  Country: US (occurrence: None)
  Receive Date: 20160610
  Receipt Date: 20160610
  Transmission Date: 20160815
  Serious: Yes (Other)
  Sender: FDA-Public Use
  Company Number: None

PATIENT
  Age: 31 Year
  Sex: Male
  Weight: 70.31 kg

DRUGS (2)
  1. NAPROXEN CVS PHARMACY [Suspect]
     Active Substance: NAPROXEN
     Dosage: 20 TABLET(S) TWICE A DAY TAKEN BY MOUTH
     Route: 048
     Dates: start: 20160411, end: 20160429
  2. PROMETHAZINE, 25 MG CVS PHARMACY [Suspect]
     Active Substance: PROMETHAZINE HYDROCHLORIDE
     Dosage: 10 TABLET(S) EVERY 6 HOURS TAKEN BY MOUTH
     Route: 048
     Dates: start: 20160411, end: 20160429

REACTIONS (3)
  - Oral herpes [None]
  - Throat irritation [None]
  - Urticaria [None]

NARRATIVE: CASE EVENT DATE: 20160425
